FAERS Safety Report 6863303-7 (Version None)
Quarter: 2010Q3

REPORT INFORMATION
  Report Type: 
  Country: None (occurrence: None)
  Receive Date: 20100721
  Receipt Date: 20100712
  Transmission Date: 20110219
  Serious: Yes (Other)
  Sender: FDA-Public Use
  Company Number: US-JNJFOC-20100704828

PATIENT
  Sex: Female
  Weight: 58.97 kg

DRUGS (2)
  1. ORTHO EVRA [Suspect]
     Indication: CONTRACEPTION
     Route: 062
  2. TOPIRAMATE [Concomitant]
     Indication: CONVULSION
     Route: 065

REACTIONS (2)
  - CONVULSION [None]
  - MENORRHAGIA [None]
